FAERS Safety Report 8784385 (Version 2)
Quarter: 2012Q4

REPORT INFORMATION
  Report Type: 
  Country: TW (occurrence: TW)
  Receive Date: 20120913
  Receipt Date: 20121029
  Transmission Date: 20130627
  Serious: Yes (Other)
  Sender: FDA-Public Use
  Company Number: TW-BRISTOL-MYERS SQUIBB COMPANY-16924722

PATIENT
  Age: 69 Year
  Sex: Female

DRUGS (3)
  1. AMANTADINE HCL [Suspect]
     Indication: PARKINSONISM
  2. ARIPIPRAZOLE [Interacting]
     Indication: SCHIZOPHRENIA
  3. TRIHEXYPHENIDYL [Interacting]
     Indication: PARKINSONISM
     Dosage: Tappered to 4mg/day,again increased to 10mg

REACTIONS (3)
  - Tardive dyskinesia [Recovered/Resolved]
  - Parkinsonism [Recovered/Resolved]
  - Drug interaction [Unknown]
